FAERS Safety Report 17644639 (Version 1)
Quarter: 2020Q2

REPORT INFORMATION
  Report Type: Spontaneous
  Country: US (occurrence: US)
  Receive Date: 20200408
  Receipt Date: 20200408
  Transmission Date: 20200713
  Serious: Yes (Other)
  Sender: FDA-Public Use
  Company Number: US-TEVA-2020-US-1220310

PATIENT

DRUGS (1)
  1. ALBUTEROL SULFATE HFA [Suspect]
     Active Substance: ALBUTEROL SULFATE
     Dosage: INHALATION AEROSOL 90 MCG PER ACTUATION
     Route: 065

REACTIONS (8)
  - Drug hypersensitivity [Unknown]
  - Product substitution issue [Unknown]
  - Insomnia [Unknown]
  - Headache [Unknown]
  - Palpitations [Unknown]
  - Blood pressure increased [Unknown]
  - Dizziness [Unknown]
  - Mental impairment [Unknown]
